FAERS Safety Report 4805676-2 (Version None)
Quarter: 2005Q4

REPORT INFORMATION
  Report Type: 
  Country: None (occurrence: None)
  Receive Date: 20051018
  Receipt Date: 20051005
  Transmission Date: 20060501
  Serious: Yes (Hospitalization)
  Sender: FDA-Public Use
  Company Number: 2005137870

PATIENT
  Age: 55 Year
  Sex: Male

DRUGS (3)
  1. GEODON [Suspect]
     Indication: BIPOLAR DISORDER
     Dosage: 40 MG (2 IN 1 D)
  2. CYMBALTA [Concomitant]
  3. LAMOTRIGINE [Concomitant]

REACTIONS (5)
  - AGGRESSION [None]
  - AGITATION [None]
  - DRUG PRESCRIBING ERROR [None]
  - FEELING ABNORMAL [None]
  - TREATMENT NONCOMPLIANCE [None]
